FAERS Safety Report 6794020-X (Version None)
Quarter: 2010Q2

REPORT INFORMATION
  Report Type: 
  Country: None (occurrence: None)
  Receive Date: 20100624
  Receipt Date: 20070814
  Transmission Date: 20101027
  Serious: Yes (Life-Threatening)
  Sender: FDA-Public Use
  Company Number: US-PFIZER INC-ENC200700132

PATIENT
  Sex: Female

DRUGS (2)
  1. ARGATROBAN [Suspect]
     Indication: HEPARIN-INDUCED THROMBOCYTOPENIA
     Dates: start: 20050101
  2. WARFARIN SODIUM [Suspect]
     Dosage: FREQUENCY:  UNK

REACTIONS (1)
  - COAGULATION TIME PROLONGED [None]
